FAERS Safety Report 24110721 (Version 1)
Quarter: 2024Q3

REPORT INFORMATION
  Report Type: Spontaneous
  Country: US (occurrence: None)
  Receive Date: 20240717
  Receipt Date: 20240717
  Transmission Date: 20241016
  Serious: No
  Sender: Public
  Company Number: None

PATIENT
  Age: 63 Year
  Sex: Female
  Weight: 80.1 kg

DRUGS (1)
  1. LEQVIO [Suspect]
     Active Substance: INCLISIRAN SODIUM
     Indication: Low density lipoprotein
     Dates: start: 20240613

REACTIONS (5)
  - Headache [None]
  - Nausea [None]
  - Myalgia [None]
  - Amnesia [None]
  - Abdominal pain upper [None]

NARRATIVE: CASE EVENT DATE: 20240613
